FAERS Safety Report 18414275 (Version 1)
Quarter: 2020Q4

REPORT INFORMATION
  Report Type: Report from Study
  Country: CA (occurrence: CA)
  Receive Date: 20201022
  Receipt Date: 20201022
  Transmission Date: 20210114
  Serious: Yes (Hospitalization)
  Sender: FDA-Public Use
  Company Number: CA-EISAI MEDICAL RESEARCH-EC-2020-077887

PATIENT
  Age: 62 Year
  Sex: Female
  Weight: 51 kg

DRUGS (7)
  1. TUSSIONEX PENNKINETIC [Concomitant]
     Active Substance: CHLORPHENIRAMINE\HYDROCODONE
     Indication: COUGH
     Route: 048
     Dates: start: 202006, end: 20200720
  2. TYLENOL [Concomitant]
     Active Substance: ACETAMINOPHEN
     Route: 048
  3. ADVIL [Concomitant]
     Active Substance: IBUPROFEN
     Route: 048
  4. LENVIMA [Suspect]
     Active Substance: LENVATINIB
     Indication: ENDOMETRIAL CANCER
     Route: 048
     Dates: start: 20200720, end: 202009
  5. KEYTRUDA [Suspect]
     Active Substance: PEMBROLIZUMAB
     Indication: PRODUCT USED FOR UNKNOWN INDICATION
     Dosage: UNKNOWN DOSE AND FREQUENCY
     Route: 041
     Dates: start: 20200720
  6. VICKS NYQUIL [Concomitant]
     Active Substance: ACETAMINOPHEN\DEXTROMETHORPHAN HYDROBROMIDE\DOXYLAMINE SUCCINATE
     Route: 048
  7. LENVIMA [Suspect]
     Active Substance: LENVATINIB
     Indication: UTERINE CANCER
     Route: 048
     Dates: start: 20200930, end: 202010

REACTIONS (18)
  - Dizziness [Unknown]
  - Dry mouth [Unknown]
  - Blood pressure increased [Unknown]
  - Decreased appetite [Unknown]
  - Chest pain [Unknown]
  - Pain in extremity [Unknown]
  - Peripheral swelling [Unknown]
  - Insomnia [Unknown]
  - Tongue erythema [Unknown]
  - Onychoclasis [Unknown]
  - Arthralgia [Unknown]
  - Tremor [Unknown]
  - Glossodynia [Unknown]
  - Pain [Unknown]
  - Nasal dryness [Unknown]
  - Diarrhoea [Unknown]
  - Pain in extremity [Unknown]
  - Nail discolouration [Unknown]

NARRATIVE: CASE EVENT DATE: 2020
